FAERS Safety Report 6413018-4 (Version None)
Quarter: 2009Q4

REPORT INFORMATION
  Report Type: 
  Country: None (occurrence: None)
  Receive Date: 20091023
  Receipt Date: 20091023
  Transmission Date: 20100525
  Serious: Yes (Other)
  Sender: FDA-Public Use
  Company Number: None

PATIENT
  Age: 47 Year
  Sex: Female
  Weight: 52.1637 kg

DRUGS (1)
  1. AZITHROMYCIN [Suspect]
     Indication: INFECTION
     Dosage: 2 TAB 1ST DAY ORAL; 1 TAB NEXT 4 DAYS ORAL (12 P APPROX)
     Route: 048

REACTIONS (4)
  - ARTHROPATHY [None]
  - ASTHENIA [None]
  - DIZZINESS [None]
  - PALPITATIONS [None]
